FAERS Safety Report 17080434 (Version 1)
Quarter: 2019Q4

REPORT INFORMATION
  Report Type: Report from Study
  Country: IT (occurrence: IT)
  Receive Date: 20191127
  Receipt Date: 20191127
  Transmission Date: 20200122
  Serious: Yes (Other)
  Sender: FDA-Public Use
  Company Number: IT-ACCORD-162489

PATIENT
  Age: 43 Year
  Sex: Female
  Weight: 47 kg

DRUGS (3)
  1. RIBOCICLIB. [Suspect]
     Active Substance: RIBOCICLIB
     Indication: PRODUCT USED FOR UNKNOWN INDICATION
     Route: 048
     Dates: start: 20181025, end: 20190501
  2. DECAPEPTYL [Concomitant]
     Dates: start: 20181025, end: 20190602
  3. LETROZOLE. [Suspect]
     Active Substance: LETROZOLE
     Indication: BREAST CANCER
     Route: 048
     Dates: start: 20181025, end: 20190605

REACTIONS (1)
  - Neutropenia [Unknown]
